FAERS Safety Report 22256074 (Version 1)
Quarter: 2023Q2

REPORT INFORMATION
  Report Type: Spontaneous
  Country: AU (occurrence: AU)
  Receive Date: 20230426
  Receipt Date: 20230426
  Transmission Date: 20230722
  Serious: Yes (Other)
  Sender: FDA-Public Use
  Company Number: AU-BAYER-2020-102809

PATIENT
  Age: 48 Year
  Sex: Female
  Weight: 108 kg

DRUGS (1)
  1. STIVARGA [Suspect]
     Active Substance: REGORAFENIB
     Indication: Hepatocellular carcinoma
     Dosage: DAILY DOSE 160 MG
     Route: 048
     Dates: start: 20170316

REACTIONS (11)
  - Hepatocellular carcinoma [None]
  - Ascites [None]
  - Impaired healing [None]
  - Diarrhoea [None]
  - Alopecia [None]
  - Dysphonia [None]
  - Fatigue [None]
  - Palmar-plantar erythrodysaesthesia syndrome [None]
  - Decreased appetite [None]
  - Nausea [None]
  - Weight decreased [None]

NARRATIVE: CASE EVENT DATE: 20170901
